FAERS Safety Report 12366238 (Version 2)
Quarter: 2016Q2

REPORT INFORMATION
  Report Type: Report from Study
  Country: US (occurrence: US)
  Receive Date: 20160513
  Receipt Date: 20160627
  Transmission Date: 20160815
  Serious: Yes (Other)
  Sender: FDA-Public Use
  Company Number: US-JNJFOC-20160512364

PATIENT
  Age: 79 Year
  Sex: Female

DRUGS (2)
  1. IMBRUVICA [Suspect]
     Active Substance: IBRUTINIB
     Indication: CHRONIC LYMPHOCYTIC LEUKAEMIA
     Route: 048
     Dates: start: 20160429, end: 20160602
  2. WARFARIN [Concomitant]
     Active Substance: WARFARIN

REACTIONS (9)
  - Ocular hyperaemia [Unknown]
  - Eye haemorrhage [Unknown]
  - Skin haemorrhage [Unknown]
  - Hypertension [Unknown]
  - Blood blister [Unknown]
  - Rash erythematous [Unknown]
  - Platelet count decreased [Unknown]
  - Disease progression [Unknown]
  - Constipation [Unknown]

NARRATIVE: CASE EVENT DATE: 2016
